FAERS Safety Report 5706958-2 (Version None)
Quarter: 2008Q2

REPORT INFORMATION
  Report Type: 
  Country: None (occurrence: None)
  Receive Date: 20080416
  Receipt Date: 20080403
  Transmission Date: 20081010
  Serious: Yes (Hospitalization)
  Sender: FDA-Public Use
  Company Number: AU-AMGEN-US204921

PATIENT
  Sex: Male

DRUGS (10)
  1. CINACALCET [Suspect]
     Indication: HYPERPARATHYROIDISM SECONDARY
     Route: 048
     Dates: start: 20061107, end: 20061226
  2. ARANESP [Suspect]
     Indication: DIALYSIS
     Route: 058
     Dates: start: 20060321
  3. CALCITRIOL [Concomitant]
     Route: 048
  4. CALTRATE [Concomitant]
     Route: 048
  5. COLOXYL WITH SENNA [Concomitant]
     Route: 048
  6. PANTOPRAZOLE SODIUM [Concomitant]
     Route: 048
  7. SIMVASTATIN [Concomitant]
     Route: 048
  8. HUMULIN N [Concomitant]
     Route: 058
  9. HUMALOG [Concomitant]
     Route: 058
  10. IRBESARTAN [Concomitant]
     Route: 048

REACTIONS (1)
  - BRADYCARDIA [None]
